FAERS Safety Report 10229369 (Version 2)
Quarter: 2014Q3

REPORT INFORMATION
  Report Type: Spontaneous
  Country: EG (occurrence: EG)
  Receive Date: 20140611
  Receipt Date: 20140821
  Transmission Date: 20150326
  Serious: Yes (Other)
  Sender: FDA-Public Use
  Company Number: EG-ROCHE-1415482

PATIENT
  Age: 56 Year
  Sex: Male
  Weight: 95 kg

DRUGS (2)
  1. DOXIUM [Concomitant]
     Route: 065
  2. LUCENTIS [Suspect]
     Active Substance: RANIBIZUMAB
     Indication: DIABETIC RETINAL OEDEMA
     Route: 050
     Dates: start: 20140515

REACTIONS (1)
  - Cerebrovascular accident [Unknown]
